FAERS Safety Report 9346571 (Version 1)
Quarter: 2013Q2

REPORT INFORMATION
  Report Type: Spontaneous
  Country: US (occurrence: US)
  Receive Date: 20130613
  Receipt Date: 20130613
  Transmission Date: 20140414
  Serious: Yes (Hospitalization)
  Sender: FDA-Public Use
  Company Number: US-BAYER-2013-071902

PATIENT
  Age: 27 Year
  Sex: Female
  Weight: 68.48 kg

DRUGS (12)
  1. OCELLA [Suspect]
  2. MOTRIN [Concomitant]
     Dosage: 800 MG, UNK
     Dates: start: 20120818
  3. ROCEPHIN [Concomitant]
     Dosage: 1 GRAM, UNK
     Dates: start: 20120819
  4. LORTAB [Concomitant]
     Dosage: UNK UNK, PRN
     Dates: start: 20120819
  5. BENADRYL [Concomitant]
     Dosage: 25 MG, 1 EVERY 6 HOURS
     Dates: start: 20120813
  6. PREDNISONE [Concomitant]
     Dosage: 20 MG, BID
     Dates: start: 20120813
  7. SKELAXIN [Concomitant]
     Dosage: 800 MG, PRN
     Dates: start: 20120824
  8. KEFLEX [Concomitant]
     Dosage: 500 MG, 4 TIMES DAILY
     Dates: start: 20120819
  9. MACROBID [Concomitant]
     Dosage: 100 MG, BID
     Dates: start: 20120819
  10. MULTIVITAMIN [Concomitant]
     Dosage: DAILY UNK
     Dates: start: 20120824
  11. TRINESSA-28 [Concomitant]
     Dosage: UNK
     Dates: start: 20120818, end: 20120820
  12. TRI-SPRINTEC [Concomitant]
     Dosage: UNK
     Dates: start: 20120824

REACTIONS (1)
  - Pulmonary embolism [None]
